FAERS Safety Report 8596398-3 (Version None)
Quarter: 2012Q3

REPORT INFORMATION
  Report Type: 
  Country: None (occurrence: None)
  Receive Date: 20120815
  Receipt Date: 20120810
  Transmission Date: 20120928
  Serious: Yes (Death)
  Sender: FDA-Public Use
  Company Number: US-CELGENEUS-163-21880-12081359

PATIENT
  Sex: Male
  Weight: 77.18 kg

DRUGS (5)
  1. IRON [Concomitant]
     Route: 065
  2. AREDIA [Concomitant]
     Route: 065
  3. REVLIMID [Suspect]
     Indication: MULTIPLE MYELOMA
     Dosage: 25 MILLIGRAM
     Dates: start: 20110723, end: 20120630
  4. M.V.I. [Concomitant]
     Route: 065
  5. FOLIC ACID [Concomitant]
     Route: 065

REACTIONS (1)
  - THROMBOSIS [None]
